FAERS Safety Report 9696127 (Version 2)
Quarter: 2013Q4

REPORT INFORMATION
  Report Type: Spontaneous
  Country: FR (occurrence: FR)
  Receive Date: 20131119
  Receipt Date: 20131223
  Transmission Date: 20140711
  Serious: Yes (Other)
  Sender: FDA-Public Use
  Company Number: FR-PFIZER INC-2013327531

PATIENT
  Age: 43 Year
  Sex: Female
  Weight: 87 kg

DRUGS (6)
  1. SOMAVERT [Suspect]
     Indication: ACROMEGALY
     Dosage: 20 MG DAILY, 5 OUT OF 7 DAYS
     Route: 058
     Dates: start: 20120302
  2. AMLOR [Concomitant]
     Indication: HYPERTENSION
     Dosage: 10 MG, 1X/DAY
     Route: 048
  3. ALDACTAZINE [Concomitant]
     Indication: HYPERTENSION
     Dosage: 1X/DAY
     Route: 048
  4. METFORMIN [Concomitant]
     Indication: HYPERGLYCAEMIA
     Dosage: 500 MG, 1X/DAY
     Route: 048
  5. LEVOTHYROX [Concomitant]
     Indication: HYPOTHYROIDISM
     Dosage: 100 UNK, 1X/DAY
     Route: 048
  6. PARACETAMOL [Concomitant]
     Indication: HEADACHE
     Dosage: 500 UNK, 3X/DAY
     Route: 048

REACTIONS (3)
  - Hepatitis [Unknown]
  - Gamma-glutamyltransferase increased [Not Recovered/Not Resolved]
  - Condition aggravated [Not Recovered/Not Resolved]
